FAERS Safety Report 8190523-4 (Version None)
Quarter: 2012Q1

REPORT INFORMATION
  Report Type: 
  Country: None (occurrence: None)
  Receive Date: 20120305
  Receipt Date: 20120222
  Transmission Date: 20120608
  Serious: Yes (Hospitalization)
  Sender: FDA-Public Use
  Company Number: 2012MA002674

PATIENT
  Age: 75 Year
  Sex: Female

DRUGS (5)
  1. DOXORUBICIN HYDROCHLORIDE [Suspect]
     Indication: DIFFUSE LARGE B-CELL LYMPHOMA
     Dosage: 85 MG;IV
     Route: 042
     Dates: start: 20110524, end: 20110609
  2. VINORELBINE [Suspect]
     Indication: DIFFUSE LARGE B-CELL LYMPHOMA
     Dosage: 2 MG;IV
     Route: 042
     Dates: start: 20110524, end: 20110609
  3. RITUXIMAB (RITUXIMAB) [Suspect]
     Indication: DIFFUSE LARGE B-CELL LYMPHOMA
     Dosage: 650 MG;IV
     Route: 042
     Dates: start: 20110524, end: 20110609
  4. NEULASTA [Suspect]
     Indication: PROPHYLAXIS
     Dosage: 6 MG;SC
     Route: 058
     Dates: start: 20110615
  5. CYCLOPHOSPHAMIDE [Suspect]
     Indication: DIFFUSE LARGE B-CELL LYMPHOMA
     Dosage: 7300 MG;IV
     Route: 042
     Dates: start: 20110524, end: 20110609

REACTIONS (7)
  - RED BLOOD CELL COUNT DECREASED [None]
  - DRUG INEFFECTIVE [None]
  - NEUTROPENIC SEPSIS [None]
  - WHITE BLOOD CELL COUNT DECREASED [None]
  - HAEMATOCRIT DECREASED [None]
  - HAEMOGLOBIN DECREASED [None]
  - PLATELET COUNT DECREASED [None]
